FAERS Safety Report 23860152 (Version 1)
Quarter: 2024Q2

REPORT INFORMATION
  Report Type: Spontaneous
  Country: GB (occurrence: GB)
  Receive Date: 20240515
  Receipt Date: 20240515
  Transmission Date: 20240716
  Serious: Yes (Life-Threatening, Hospitalization, Disabling, Other)
  Sender: FDA-Public Use
  Company Number: GB-VER-202400003

PATIENT
  Age: 44 Year
  Sex: Female
  Weight: 50 kg

DRUGS (3)
  1. TRIPTORELIN PAMOATE [Suspect]
     Active Substance: TRIPTORELIN PAMOATE
     Indication: Uterine leiomyoma
     Dosage: POWDER AND SOLVENT FOR SUSPENSION FOR?INJECTION
     Route: 065
     Dates: start: 20230826, end: 20230924
  2. TRIPTORELIN PAMOATE [Suspect]
     Active Substance: TRIPTORELIN PAMOATE
     Indication: Off label use
     Dosage: POWDER AND SOLVENT FOR SUSPENSION FOR?INJECTION
     Route: 065
     Dates: start: 20230826, end: 20230924
  3. TIBOLONE [Concomitant]
     Active Substance: TIBOLONE
     Indication: Progesterone decreased
     Route: 065
     Dates: start: 20230817, end: 20230924

REACTIONS (3)
  - Anaphylactic shock [Not Recovered/Not Resolved]
  - Medication error [Unknown]
  - Asphyxia [Not Recovered/Not Resolved]

NARRATIVE: CASE EVENT DATE: 20231124
